FAERS Safety Report 19136256 (Version 5)
Quarter: 2021Q2

REPORT INFORMATION
  Report Type: Report from Study
  Country: US (occurrence: US)
  Receive Date: 20210414
  Receipt Date: 20210624
  Transmission Date: 20210717
  Serious: Yes (Hospitalization)
  Sender: FDA-Public Use
  Company Number: US-PFIZER INC-2021198840

PATIENT
  Age: 45 Year
  Sex: Female

DRUGS (4)
  1. FASLODEX [Concomitant]
     Active Substance: FULVESTRANT
     Dosage: UNK
  2. IBRANCE [Suspect]
     Active Substance: PALBOCICLIB
     Indication: BREAST CANCER FEMALE
     Dosage: 125 MG, DAILY 21 DAYS ON 7 DAYS OFF
     Route: 048
     Dates: start: 20210212, end: 20210312
  3. KEYTRUDA [Concomitant]
     Active Substance: PEMBROLIZUMAB
  4. IBRANCE [Suspect]
     Active Substance: PALBOCICLIB
     Dosage: 100 MG, DAILY 21 DAYS ON 7 DAYS OFF
     Route: 048
     Dates: start: 20210319

REACTIONS (15)
  - White blood cell count decreased [Recovering/Resolving]
  - Arthralgia [Unknown]
  - Chills [Unknown]
  - Product dose omission in error [Unknown]
  - Hepatic enzyme increased [Unknown]
  - Constipation [Unknown]
  - Diarrhoea [Unknown]
  - Neoplasm progression [Unknown]
  - Pyrexia [Unknown]
  - Fatigue [Not Recovered/Not Resolved]
  - Abdominal discomfort [Unknown]
  - Abdominal pain [Not Recovered/Not Resolved]
  - Neutrophil count decreased [Not Recovered/Not Resolved]
  - Rash erythematous [Unknown]
  - Rash pruritic [Unknown]

NARRATIVE: CASE EVENT DATE: 202102
